FAERS Safety Report 7574775-7 (Version None)
Quarter: 2011Q2

REPORT INFORMATION
  Report Type: 
  Country: None (occurrence: None)
  Receive Date: 20110627
  Receipt Date: 20110623
  Transmission Date: 20111010
  Serious: Yes (Hospitalization, Other)
  Sender: FDA-Public Use
  Company Number: US-PFIZER INC-2011031616

PATIENT
  Sex: Female
  Weight: 91 kg

DRUGS (34)
  1. NICOTINE [Concomitant]
     Dosage: 40 MG, UNK
  2. VERAPAMIL [Concomitant]
     Indication: CARDIOMYOPATHY
     Dosage: 120 MG, 1X/DAY
  3. BUDESONIDE [Concomitant]
     Indication: ASTHMA
     Dosage: UNK
  4. SIMVASTATIN [Concomitant]
     Indication: BLOOD CHOLESTEROL ABNORMAL
     Dosage: 40 MG, 1X/DAY
  5. CELEXA [Concomitant]
     Dosage: 20 MG, 1X/DAY
     Route: 048
  6. ADVAIR DISKUS 100/50 [Concomitant]
     Indication: ASTHMA
     Dosage: UNK
  7. SPIRONOLACTONE [Concomitant]
     Indication: CARDIOMYOPATHY
     Dosage: 25 MG, 1X/DAY
  8. PREDNISONE [Concomitant]
     Indication: VIRAL INFECTION
  9. VICODIN [Concomitant]
     Indication: PAIN
     Dosage: 5/500 MG ONE TO TWO TABLETS EVERY 4-6 HOURS DAILY
     Route: 048
  10. VOLTAREN [Concomitant]
     Indication: INFLAMMATION
     Dosage: UNK
     Route: 061
  11. REGLAN [Concomitant]
     Dosage: 10 MG, AS NEEDED
     Route: 048
  12. CHANTIX [Suspect]
     Dosage: 0.5 MG, 1X/DAY
     Route: 048
     Dates: start: 20110204, end: 20110201
  13. CYMBALTA [Concomitant]
     Indication: FIBROMYALGIA
     Dosage: 60 MG, 2X/DAY
     Route: 048
  14. DILAUDID [Concomitant]
     Indication: PAIN
     Dosage: 4 MG, 1X/DAY
  15. IMITREX [Concomitant]
     Dosage: 100 MG, AS NEEDED
     Route: 048
  16. CHANTIX [Suspect]
     Indication: SMOKING CESSATION THERAPY
     Dosage: 1 MG, 1X/DAY
     Route: 048
     Dates: start: 20100101
  17. CHANTIX [Suspect]
     Dosage: 0.5 MG, 1X/DAY
     Route: 048
     Dates: start: 20110401
  18. LASIX [Concomitant]
     Dosage: 40 MG, 1X/DAY
     Route: 048
  19. RESTORIL [Concomitant]
     Dosage: 50 MG, AS NEEDED
     Route: 048
  20. DOXEPIN [Concomitant]
     Indication: PRURITUS
     Dosage: 50MG IN THE MORNING AND 100 MG AT NIGHT
  21. PREDNISONE [Concomitant]
     Indication: SINUSITIS
     Dosage: 40 MG, UNK
     Dates: start: 20110303, end: 20110304
  22. LYRICA [Concomitant]
     Indication: FIBROMYALGIA
     Dosage: 100 MG, 1X/DAY
     Route: 048
  23. ALBUTEROL [Concomitant]
     Indication: ASTHMA
     Dosage: UNK
  24. METAXALONE [Concomitant]
     Indication: MUSCLE SPASMS
     Dosage: 800 MG, 2X/DAY
  25. MONTELUKAST SODIUM [Concomitant]
     Dosage: 10 MG, 1X/DAY
  26. POTASSIUM [Concomitant]
     Dosage: 8 MEQ, 1X/DAY
  27. PRILOSEC [Concomitant]
     Indication: ULCER
     Dosage: 40 MG, UNK
  28. MS CONTIN [Concomitant]
     Indication: PAIN
     Dosage: 60 MG, 1X/DAY
  29. CHANTIX [Suspect]
     Dosage: UNK
     Route: 048
     Dates: start: 20110223
  30. CHANTIX [Suspect]
     Dosage: 1 MG, 2X/DAY
     Route: 048
     Dates: start: 20110101
  31. PREDNISONE [Concomitant]
     Indication: INFLAMMATION
  32. VALIUM [Concomitant]
     Indication: SLEEP DISORDER
     Dosage: 10 MG, 3X/DAY
     Route: 048
  33. LUMIGAN [Concomitant]
     Indication: GLAUCOMA
     Dosage: 1 GTT, 1X/DAY
     Route: 047
  34. SEROQUEL [Concomitant]
     Indication: SLEEP DISORDER
     Dosage: 100 MG, 1X/DAY
     Route: 048

REACTIONS (5)
  - CONCUSSION [None]
  - BLINDNESS TRANSIENT [None]
  - SYNCOPE [None]
  - LOSS OF CONSCIOUSNESS [None]
  - FALL [None]
